FAERS Safety Report 21713025 (Version 2)
Quarter: 2022Q4

REPORT INFORMATION
  Report Type: Spontaneous
  Country: US (occurrence: US)
  Receive Date: 20221212
  Receipt Date: 20221222
  Transmission Date: 20230113
  Serious: No
  Sender: FDA-Public Use
  Company Number: US-PFIZER INC-202201359129

PATIENT
  Age: 77 Year
  Sex: Male
  Weight: 96.62 kg

DRUGS (5)
  1. PAXLOVID [Suspect]
     Active Substance: NIRMATRELVIR\RITONAVIR
     Indication: COVID-19 treatment
     Dosage: [PF-07321332 300 MG]/[RITONAVIR 100 MG]; 2X/DAY
     Route: 048
     Dates: start: 20221203
  2. VITAMIN D3 [Concomitant]
     Active Substance: CHOLECALCIFEROL
     Dosage: 5000 IU
     Route: 048
     Dates: start: 2021
  3. VITAMIN D3 [Concomitant]
     Active Substance: CHOLECALCIFEROL
     Dosage: 2000 IU, 1X/DAY
     Route: 048
  4. VITAMIN D3 [Concomitant]
     Active Substance: CHOLECALCIFEROL
     Dosage: 2000 IU, 2X/DAY
     Route: 048
  5. LISINOPRIL [Concomitant]
     Active Substance: LISINOPRIL
     Indication: Hypertension
     Dosage: 40 MG, 1X/DAY
     Route: 048

REACTIONS (6)
  - Chest pain [Unknown]
  - Feeling abnormal [Unknown]
  - Dysgeusia [Unknown]
  - Product taste abnormal [Unknown]
  - Insomnia [Unknown]
  - Sinus congestion [Unknown]

NARRATIVE: CASE EVENT DATE: 20221201
